FAERS Safety Report 9793045 (Version 1)
Quarter: 2013Q4

REPORT INFORMATION
  Report Type: Spontaneous
  Country: US (occurrence: None)
  Receive Date: 20131231
  Receipt Date: 20131231
  Transmission Date: 20140711
  Serious: Yes (Disabling, Other)
  Sender: FDA-Public Use
  Company Number: None

PATIENT
  Age: 69 Year
  Sex: Male
  Weight: 9.07 kg

DRUGS (1)
  1. CLOPIDOGREL [Suspect]
     Indication: STENT PLACEMENT
     Dosage: 90 PILLS
     Route: 048
     Dates: start: 20130717, end: 20131221

REACTIONS (3)
  - Dyspnoea [None]
  - Lichen planus [None]
  - Muscular weakness [None]
